FAERS Safety Report 7082559-1 (Version None)
Quarter: 2010Q4

REPORT INFORMATION
  Report Type: 
  Country: None (occurrence: None)
  Receive Date: 20101104
  Receipt Date: 20101101
  Transmission Date: 20110411
  Serious: No
  Sender: FDA-Public Use
  Company Number: US-ROXANE LABORATORIES, INC.-2010-RO-01451RO

PATIENT
  Sex: Female

DRUGS (2)
  1. NARATRIPTAN [Suspect]
     Indication: MIGRAINE
     Route: 048
     Dates: start: 20100710, end: 20101101
  2. EXCEDRIN (MIGRAINE) [Concomitant]
     Indication: MIGRAINE

REACTIONS (1)
  - DRUG INEFFECTIVE [None]
